FAERS Safety Report 9737241 (Version 2)
Quarter: 2015Q2

REPORT INFORMATION
  Report Type: Spontaneous
  Country: IT (occurrence: IT)
  Receive Date: 20131206
  Receipt Date: 20150519
  Transmission Date: 20150821
  Serious: Yes (Hospitalization, Other)
  Sender: FDA-Public Use
  Company Number: PHHY2013IT138541

PATIENT
  Age: 89 Year
  Sex: Female

DRUGS (3)
  1. LEVOSULPIRIDE [Interacting]
     Active Substance: LEVOSULPIRIDE
     Indication: DYSPEPSIA
     Dosage: 25 MG, TID
     Route: 065
  2. RAMIPRIL. [Concomitant]
     Active Substance: RAMIPRIL
     Indication: HYPERTENSION
     Dosage: 2.5 MG, UNK
     Route: 065
  3. CITALOPRAM [Suspect]
     Active Substance: CITALOPRAM HYDROBROMIDE
     Indication: DEPRESSION
     Dosage: 40 MG, QD
     Route: 065

REACTIONS (10)
  - Bradycardia [Recovered/Resolved]
  - Cardiac arrest [Recovered/Resolved]
  - Drug interaction [Unknown]
  - Syncope [Recovered/Resolved]
  - Electrocardiogram QT prolonged [Recovered/Resolved]
  - Torsade de pointes [Recovered/Resolved]
  - Circulatory collapse [Recovered/Resolved]
  - Ventricular arrhythmia [Recovered/Resolved]
  - Palpitations [Recovered/Resolved]
  - Ventricular tachycardia [Recovered/Resolved]
